FAERS Safety Report 10732213 (Version 1)
Quarter: 2015Q1

REPORT INFORMATION
  Report Type: Report from Study
  Country: US (occurrence: US)
  Receive Date: 20150123
  Receipt Date: 20150123
  Transmission Date: 20150721
  Serious: Yes (Other)
  Sender: FDA-Public Use
  Company Number: PHEH2015US001459

PATIENT
  Sex: Male

DRUGS (1)
  1. GILENYA [Suspect]
     Active Substance: FINGOLIMOD HYDROCHLORIDE
     Indication: MULTIPLE SCLEROSIS
     Dosage: 0.5 MG, QD
     Route: 048

REACTIONS (14)
  - Type 1 diabetes mellitus [Unknown]
  - Emphysema [Unknown]
  - Glaucoma [Unknown]
  - Hypothyroidism [Unknown]
  - Arthritis [Unknown]
  - Asthma [Unknown]
  - Epilepsy [Unknown]
  - Bronchitis chronic [Unknown]
  - Hypertension [Unknown]
  - Blood cholesterol increased [Unknown]
  - Depression [Unknown]
  - Gastrooesophageal reflux disease [Unknown]
  - Drug hypersensitivity [Unknown]
  - Type 2 diabetes mellitus [Unknown]
